FAERS Safety Report 5047608-0 (Version None)
Quarter: 2006Q2

REPORT INFORMATION
  Report Type: 
  Country: None (occurrence: None)
  Receive Date: 20060601
  Receipt Date: 20060327
  Transmission Date: 20061013
  Serious: No
  Sender: FDA-Public Use
  Company Number: 2006PV010999

PATIENT
  Age: 66 Year
  Sex: Female
  Weight: 80.7403 kg

DRUGS (3)
  1. BYETTA [Suspect]
     Indication: DIABETES MELLITUS NON-INSULIN-DEPENDENT
     Dosage: 10 MCG BID SC
     Route: 058
     Dates: start: 20051001, end: 20060301
  2. METFORMIN HCL [Concomitant]
  3. LANTUS [Concomitant]

REACTIONS (1)
  - SWELLING FACE [None]
